FAERS Safety Report 5408761-X (Version None)
Quarter: 2007Q3

REPORT INFORMATION
  Report Type: 
  Country: None (occurrence: None)
  Receive Date: 20070808
  Receipt Date: 20070807
  Transmission Date: 20080115
  Serious: Yes (Hospitalization)
  Sender: FDA-Public Use
  Company Number: D0054226A

PATIENT
  Sex: Female
  Weight: 60 kg

DRUGS (1)
  1. QUILONUM RETARD [Suspect]
     Dosage: 450MG UNKNOWN
     Route: 048

REACTIONS (4)
  - BRADYCARDIA [None]
  - CONFUSIONAL STATE [None]
  - DRUG ABUSER [None]
  - GAIT DISTURBANCE [None]
